FAERS Safety Report 24693558 (Version 1)
Quarter: 2024Q4

REPORT INFORMATION
  Report Type: Spontaneous
  Country: DE (occurrence: DE)
  Receive Date: 20241204
  Receipt Date: 20241204
  Transmission Date: 20250115
  Serious: Yes (Other)
  Sender: TEVA
  Company Number: DE-TEVA-VS-3270186

PATIENT
  Age: 43 Year
  Sex: Male

DRUGS (9)
  1. MORPHINE [Suspect]
     Active Substance: MORPHINE
     Indication: Drug abuse
     Route: 048
  2. PREGABALIN [Suspect]
     Active Substance: PREGABALIN
     Indication: Drug abuse
     Route: 048
  3. NORDAZEPAM [Suspect]
     Active Substance: NORDAZEPAM
     Indication: Drug abuse
     Route: 048
  4. CODEINE [Suspect]
     Active Substance: CODEINE
     Indication: Drug abuse
     Route: 048
  5. LORAZEPAM [Suspect]
     Active Substance: LORAZEPAM
     Indication: Drug abuse
     Route: 048
  6. DIAZEPAM [Suspect]
     Active Substance: DIAZEPAM
     Indication: Drug abuse
     Route: 048
  7. GABAPENTIN [Suspect]
     Active Substance: GABAPENTIN
     Indication: Drug abuse
     Route: 048
  8. BROMAZEPAM [Suspect]
     Active Substance: BROMAZEPAM
     Indication: Drug abuse
     Route: 048
  9. OXAZEPAM [Suspect]
     Active Substance: OXAZEPAM
     Indication: Drug abuse
     Route: 048

REACTIONS (3)
  - Lethargy [Unknown]
  - Bradykinesia [Unknown]
  - Drug abuse [Unknown]
